FAERS Safety Report 4595628-2 (Version None)
Quarter: 2005Q1

REPORT INFORMATION
  Report Type: 
  Country: None (occurrence: None)
  Receive Date: 20050223
  Receipt Date: 20050223
  Transmission Date: 20050727
  Serious: Yes (Hospitalization, Other)
  Sender: FDA-Public Use
  Company Number: None

PATIENT
  Age: 49 Year
  Sex: Male
  Weight: 89 kg

DRUGS (1)
  1. VANCOMYCIN [Suspect]
     Indication: STAPHYLOCOCCAL INFECTION
     Dosage: 1.25 MG Q12 IV
     Route: 042
     Dates: start: 20041107, end: 20041124

REACTIONS (1)
  - LEUKOCYTOCLASTIC VASCULITIS [None]
